FAERS Safety Report 4543263-4 (Version None)
Quarter: 2004Q4

REPORT INFORMATION
  Report Type: 
  Country: None (occurrence: None)
  Receive Date: 20041229
  Receipt Date: 20041221
  Transmission Date: 20050328
  Serious: Yes (Other)
  Sender: FDA-Public Use
  Company Number: K200401953

PATIENT
  Age: 74 Year
  Sex: Male

DRUGS (3)
  1. ALTACE [Suspect]
     Dosage: 5 MG, QD, ORAL
     Route: 048
     Dates: start: 20041012, end: 20041104
  2. WARFARIN (WARFARIN) [Concomitant]
  3. SIMVASTATIN [Concomitant]

REACTIONS (6)
  - CONJUNCTIVITIS [None]
  - EYE PRURITUS [None]
  - HEADACHE [None]
  - RASH PRURITIC [None]
  - RHINORRHOEA [None]
  - SNEEZING [None]
